FAERS Safety Report 16146630 (Version 2)
Quarter: 2020Q2

REPORT INFORMATION
  Report Type: Spontaneous
  Country: US (occurrence: US)
  Receive Date: 20190402
  Receipt Date: 20200430
  Transmission Date: 20200713
  Serious: No
  Sender: FDA-Public Use
  Company Number: US-TEVA-2019-US-1024350

PATIENT

DRUGS (1)
  1. NIACIN. [Suspect]
     Active Substance: NIACIN
     Route: 065

REACTIONS (1)
  - Drug hypersensitivity [Unknown]
